FAERS Safety Report 7039273-8 (Version None)
Quarter: 2010Q4

REPORT INFORMATION
  Report Type: 
  Country: None (occurrence: None)
  Receive Date: 20101006
  Receipt Date: 20100921
  Transmission Date: 20110411
  Serious: Yes (Other)
  Sender: FDA-Public Use
  Company Number: ACO_02327_2010

PATIENT
  Sex: Female

DRUGS (1)
  1. AMPYRA [Suspect]
     Indication: PRODUCT USED FOR UNKNOWN INDICATION
     Dosage: (DF)

REACTIONS (4)
  - COGNITIVE DISORDER [None]
  - CONFUSIONAL STATE [None]
  - DIZZINESS [None]
  - URINARY TRACT INFECTION [None]
